FAERS Safety Report 8668946 (Version 2)
Quarter: 2013Q1

REPORT INFORMATION
  Report Type: Spontaneous
  Country: BR (occurrence: BR)
  Receive Date: 20120717
  Receipt Date: 20130114
  Transmission Date: 20140127
  Serious: Yes (Death, Hospitalization, Other)
  Sender: FDA-Public Use
  Company Number: PHHY2012BR060984

PATIENT
  Age: 60 Year
  Sex: Female

DRUGS (1)
  1. LEPONEX [Suspect]
     Dosage: 100 MG, UNK
     Route: 048

REACTIONS (2)
  - Infection [Fatal]
  - Incorrect dose administered [Unknown]
